FAERS Safety Report 17187956 (Version 1)
Quarter: 2019Q4

REPORT INFORMATION
  Report Type: Spontaneous
  Country: FR (occurrence: FR)
  Receive Date: 20191221
  Receipt Date: 20191221
  Transmission Date: 20200122
  Serious: Yes (Other)
  Sender: FDA-Public Use
  Company Number: FR-AUROBINDO-AUR-APL-2019-105791

PATIENT
  Age: 54 Year
  Sex: Male
  Weight: 93 kg

DRUGS (3)
  1. DULOXETINE. [Suspect]
     Active Substance: DULOXETINE
     Indication: DEPRESSION
     Dosage: 60 MILLIGRAM, ONCE A DAY, 1-0-0
     Route: 048
     Dates: start: 20180608
  2. BISOPROLOL FUMARATE. [Concomitant]
     Active Substance: BISOPROLOL FUMARATE
     Indication: HYPERTENSION
     Dosage: 5 MILLIGRAM, ONCE A DAY
     Route: 048
     Dates: start: 2013
  3. PREGABALIN. [Suspect]
     Active Substance: PREGABALIN
     Indication: ANALGESIC INTERVENTION SUPPORTIVE THERAPY
     Dosage: 100 MILLIGRAM, ONCE A DAY, 1-0-0
     Route: 048
     Dates: start: 20180608

REACTIONS (2)
  - Atrial fibrillation [Not Recovered/Not Resolved]
  - Left ventricular dysfunction [Not Recovered/Not Resolved]

NARRATIVE: CASE EVENT DATE: 20190401
